FAERS Safety Report 23043783 (Version 1)
Quarter: 2023Q4

REPORT INFORMATION
  Report Type: Report from Study
  Country: US (occurrence: US)
  Receive Date: 20231009
  Receipt Date: 20231009
  Transmission Date: 20240110
  Serious: No
  Sender: FDA-Public Use
  Company Number: US-ACADIA PHARMACEUTICALS INC.-ACA-2023-TRF-004131

PATIENT
  Sex: Female

DRUGS (1)
  1. DAYBUE [Suspect]
     Active Substance: TROFINETIDE
     Dosage: 0.25 OF DOSE
     Route: 065
     Dates: start: 20230913

REACTIONS (4)
  - Somnolence [Unknown]
  - Speech disorder [Unknown]
  - Drooling [Unknown]
  - Underdose [Unknown]

NARRATIVE: CASE EVENT DATE: 20230913
